FAERS Safety Report 9026102 (Version 1)
Quarter: 2013Q1

REPORT INFORMATION
  Report Type: Spontaneous
  Country: GB (occurrence: None)
  Receive Date: 20130107
  Receipt Date: 20130107
  Transmission Date: 20140127
  Serious: Yes (Other)
  Sender: FDA-Public Use
  Company Number: AUR-APL-2012-05645

PATIENT
  Age: 40 Year
  Sex: Female

DRUGS (1)
  1. SUMATRIPTAN [Suspect]
     Dosage: (1 DOSAGE FORMS, AS REQUIRED)
     Route: 048
     Dates: start: 20121210, end: 2012

REACTIONS (3)
  - Dizziness [None]
  - Nausea [None]
  - Product substitution issue [None]
